FAERS Safety Report 10521772 (Version 2)
Quarter: 2014Q4

REPORT INFORMATION
  Report Type: Spontaneous
  Country: US (occurrence: US)
  Receive Date: 20141016
  Receipt Date: 20141016
  Transmission Date: 20150528
  Serious: Yes (Death, Hospitalization, Other)
  Sender: FDA-Public Use
  Company Number: US-GLAXOSMITHKLINE-A0870878A

PATIENT
  Sex: Female
  Weight: 181 kg

DRUGS (6)
  1. ALBUTEROL. [Concomitant]
     Active Substance: ALBUTEROL
  2. NORVASC [Concomitant]
     Active Substance: AMLODIPINE BESYLATE
  3. METOPROLOL [Concomitant]
     Active Substance: METOPROLOL
  4. ZANTAC [Concomitant]
     Active Substance: RANITIDINE HYDROCHLORIDE
  5. METOLAZONE. [Concomitant]
     Active Substance: METOLAZONE
  6. AVANDIA [Suspect]
     Active Substance: ROSIGLITAZONE MALEATE
     Indication: DIABETES MELLITUS
     Dosage: 8 MG, QD
     Route: 048

REACTIONS (5)
  - Cardio-respiratory arrest [Fatal]
  - Ischaemic cardiomyopathy [Unknown]
  - Myocardial infarction [Unknown]
  - Coronary artery disease [Fatal]
  - Cardiac failure congestive [Fatal]
